FAERS Safety Report 9547559 (Version 2)
Quarter: 2013Q4

REPORT INFORMATION
  Report Type: Spontaneous
  Country: US (occurrence: None)
  Receive Date: 20130920
  Receipt Date: 20131009
  Transmission Date: 20140711
  Serious: Yes (Other)
  Sender: FDA-Public Use
  Company Number: NXG-13-011

PATIENT
  Sex: Female

DRUGS (1)
  1. FIORICET [Suspect]

REACTIONS (1)
  - Diarrhoea [None]
